FAERS Safety Report 9178232 (Version 1)
Quarter: 2013Q1

REPORT INFORMATION
  Report Type: Spontaneous
  Country: US (occurrence: US)
  Receive Date: 20130321
  Receipt Date: 20130321
  Transmission Date: 20140127
  Serious: No
  Sender: FDA-Public Use
  Company Number: US-TEVA-393170USA

PATIENT
  Sex: Male
  Weight: 90.8 kg

DRUGS (3)
  1. PROAIR HFA [Suspect]
     Indication: EMPHYSEMA
     Dosage: Q 4-6 H PRN
     Dates: start: 2011
  2. ADVAIR [Concomitant]
  3. SPIRIVA [Concomitant]

REACTIONS (1)
  - Drug effect decreased [Not Recovered/Not Resolved]
